FAERS Safety Report 4330724-6 (Version None)
Quarter: 2004Q2

REPORT INFORMATION
  Report Type: 
  Country: None (occurrence: None)
  Receive Date: 20040401
  Receipt Date: 20040401
  Transmission Date: 20050107
  Serious: Yes (Hospitalization)
  Sender: FDA-Public Use
  Company Number: None

PATIENT
  Age: 50 Year
  Sex: Male

DRUGS (2)
  1. VENOFER [Suspect]
     Indication: ANAEMIA
     Dosage: 100MG IV DAILY
     Route: 042
     Dates: start: 20040331
  2. WELLBUTRIN [Suspect]
     Indication: DEPRESSION

REACTIONS (4)
  - DIZZINESS [None]
  - HYPOAESTHESIA [None]
  - MENTAL IMPAIRMENT [None]
  - SPEECH DISORDER [None]
